FAERS Safety Report 7338841-3 (Version None)
Quarter: 2011Q1

REPORT INFORMATION
  Report Type: 
  Country: None (occurrence: None)
  Receive Date: 20110308
  Receipt Date: 20110223
  Transmission Date: 20110831
  Serious: Yes (Hospitalization)
  Sender: FDA-Public Use
  Company Number: FR-ROCHE-762151

PATIENT
  Age: 52 Year
  Sex: Male
  Weight: 83 kg

DRUGS (9)
  1. IRINOTECAN [Suspect]
     Dosage: CONCENTRATE FOR SOLUTION FOR INFUSION
     Route: 050
  2. ESOMEPRAZOLE [Concomitant]
     Indication: OESOPHAGITIS
  3. MEDROL [Concomitant]
     Dates: start: 20100819
  4. CALCIUM CARBONATE [Concomitant]
  5. CHOLECALCIFEROL [Concomitant]
  6. BEVACIZUMAB [Suspect]
     Indication: GLIOBLASTOMA
     Route: 042
  7. IRINOTECAN [Suspect]
     Indication: GLIOBLASTOMA
     Route: 050
  8. LEVETIRACETAM [Concomitant]
     Indication: EPILEPSY
  9. TEMOZOLOMIDE [Suspect]
     Indication: GLIOBLASTOMA
     Route: 048
     Dates: start: 20101108, end: 20101223

REACTIONS (2)
  - CHEMICAL PERITONITIS [None]
  - CHOLECYSTITIS [None]
